FAERS Safety Report 19642545 (Version 3)
Quarter: 2021Q3

REPORT INFORMATION
  Report Type: Report from Study
  Country: KR (occurrence: KR)
  Receive Date: 20210730
  Receipt Date: 20210921
  Transmission Date: 20211014
  Serious: Yes (Hospitalization, Other)
  Sender: FDA-Public Use
  Company Number: KR-TAKEDA-2021TUS047218

PATIENT
  Age: 30 Year
  Sex: Male
  Weight: 62.2 kg

DRUGS (45)
  1. NADOXOL [Concomitant]
     Dosage: 2 MILLILITER, BID
     Route: 042
     Dates: start: 20210711, end: 20210711
  2. ZIBOR [Concomitant]
     Dosage: 0.2 MILLILITER, QD
     Route: 058
     Dates: start: 20210709, end: 20210713
  3. MACPERAN [Concomitant]
     Active Substance: METOCLOPRAMIDE HYDROCHLORIDE
     Dosage: 2 MILLILITER, BID
     Route: 042
     Dates: start: 20210714, end: 20210714
  4. HEPASOL [Concomitant]
     Dosage: 500 MILLILITER
     Route: 042
     Dates: start: 20210713, end: 20210713
  5. TABINUL [Concomitant]
     Dosage: 0.4 MILLIGRAM
     Route: 042
     Dates: start: 20210709, end: 20210709
  6. SOLONDO [Concomitant]
     Active Substance: PREDNISOLONE
     Dosage: 5 MILLIGRAM, QD
     Route: 048
     Dates: start: 20210714, end: 20210716
  7. ULTIAN [Concomitant]
     Dosage: 5 MILLIGRAM
     Route: 042
     Dates: start: 20210709, end: 20210709
  8. FENTANYL CITRATE. [Concomitant]
     Active Substance: FENTANYL CITRATE
     Dosage: 3.14 MILLIGRAM
     Route: 042
     Dates: start: 20210709, end: 20210709
  9. NORZYME [Concomitant]
     Dosage: UNK UNK, TID
     Route: 048
     Dates: start: 20210715
  10. TARIVID [Concomitant]
     Active Substance: OFLOXACIN
     Dosage: UNK
     Route: 062
     Dates: start: 20210709, end: 20210716
  11. YOOSETRON [Concomitant]
     Dosage: 1.5 MILLILITER, QD
     Route: 042
     Dates: start: 20210709, end: 20210709
  12. EPHEDRINE. [Concomitant]
     Active Substance: EPHEDRINE
  13. ULTIAN [Concomitant]
     Dosage: 4 MILLIGRAM, QD
     Route: 042
     Dates: start: 20210709, end: 20210709
  14. FREEFOL MCT [Concomitant]
     Dosage: 1000 MILLIGRAM
     Route: 042
     Dates: start: 20210709, end: 20210709
  15. VEDOLIZUMAB [Suspect]
     Active Substance: VEDOLIZUMAB
     Indication: COLITIS ULCERATIVE
     Dosage: 300 MILLIGRAM
     Route: 042
     Dates: start: 20210510
  16. ASACOL [Concomitant]
     Active Substance: MESALAMINE
     Indication: DIARRHOEA
     Dosage: 500 MILLIGRAM, QD
     Route: 054
     Dates: start: 20150105, end: 20210708
  17. PICO [Concomitant]
     Dosage: 170 MILLILITER, BID
     Route: 048
     Dates: start: 20210708, end: 20210708
  18. NADOXOL [Concomitant]
     Dosage: 2 MILLILITER, TID
     Route: 042
     Dates: start: 20210709, end: 20210710
  19. NEOSTIGMINE METHYLSULFATE. [Concomitant]
     Active Substance: NEOSTIGMINE METHYLSULFATE
     Dosage: 0.5 MILLIGRAM, QD
     Route: 030
     Dates: start: 20210709, end: 20210709
  20. VEDOLIZUMAB [Suspect]
     Active Substance: VEDOLIZUMAB
     Dosage: 300 MILLIGRAM
     Route: 042
     Dates: start: 20210524
  21. LACIDOFIL [Concomitant]
     Active Substance: PROBIOTICS NOS
     Dosage: UNK UNK, BID
     Route: 048
     Dates: start: 20210715
  22. TRIDOL [Concomitant]
     Active Substance: TRAMADOL HYDROCHLORIDE
     Dosage: 50 MILLIGRAM, QD
     Route: 042
     Dates: start: 20210710, end: 20210710
  23. MACPERAN [Concomitant]
     Active Substance: METOCLOPRAMIDE HYDROCHLORIDE
     Dosage: 2 MILLILITER, TID
     Route: 042
     Dates: start: 20210711, end: 20210713
  24. MACPERAN [Concomitant]
     Active Substance: METOCLOPRAMIDE HYDROCHLORIDE
     Dosage: 2 MILLILITER, BID
     Route: 042
     Dates: start: 20210710, end: 20210710
  25. SMOFKABIVEN [Concomitant]
     Active Substance: AMINO ACIDS\DEXTROSE\ELECTROLYTES NOS\SOYBEAN OIL
     Dosage: 1448 MILLILITER, QD
     Route: 042
     Dates: start: 20210713, end: 20210714
  26. CAVID [Concomitant]
     Dosage: UNK UNK, QD
     Route: 048
     Dates: start: 20200814, end: 20210708
  27. SOLONDO [Concomitant]
     Active Substance: PREDNISOLONE
     Dosage: 20 MILLIGRAM, QD
     Route: 048
     Dates: start: 20210713, end: 20210720
  28. ANEPOL [Concomitant]
     Dosage: 12 MILLILITER, QD
     Route: 042
     Dates: start: 20210709, end: 20210709
  29. PETHIDIN HCL [Concomitant]
     Dosage: 50 MILLIGRAM
     Route: 042
     Dates: start: 20210709, end: 20210709
  30. FOTAGEL [Concomitant]
     Indication: DIARRHOEA
     Dosage: 20 MILLILITER
     Route: 048
     Dates: start: 20210316, end: 20210707
  31. PENTASA [Concomitant]
     Active Substance: MESALAMINE
     Indication: DIARRHOEA
     Dosage: 1 GRAM, BID
     Route: 048
     Dates: start: 20150715, end: 20210708
  32. PACETIN [Concomitant]
     Dosage: 1 GRAM, BID
     Route: 042
     Dates: start: 20210709, end: 20210710
  33. XEROVA [Concomitant]
     Dosage: UNK
     Route: 048
     Dates: start: 20210709, end: 20210714
  34. FRESOFOL MCT [Concomitant]
     Dosage: 1000 MILLIGRAM, QD
     Route: 042
     Dates: start: 20210709, end: 20210709
  35. FENTANYL. [Concomitant]
     Active Substance: FENTANYL
     Dosage: UNK, BID
     Route: 042
     Dates: start: 20210709
  36. VEDOLIZUMAB [Suspect]
     Active Substance: VEDOLIZUMAB
     Dosage: 300 MILLIGRAM
     Route: 042
     Dates: start: 20210621, end: 20210727
  37. MYPOL [Concomitant]
     Dosage: UNK, PRN
     Route: 048
     Dates: start: 20210715
  38. NASEA [Concomitant]
     Active Substance: RAMOSETRON HYDROCHLORIDE
     Dosage: 0.3 MILLIGRAM, QD
     Route: 042
  39. TAMIPOOL [Concomitant]
     Active Substance: VITAMINS
     Dosage: UNK
     Route: 042
     Dates: start: 20210713, end: 20210713
  40. SOLONDO [Concomitant]
     Active Substance: PREDNISOLONE
     Dosage: 10 MILLIGRAM, QD
     Route: 048
     Dates: start: 20210714, end: 20210714
  41. SOLONDO [Concomitant]
     Active Substance: PREDNISOLONE
     Dosage: 15 MILLIGRAM, QD
     Route: 048
     Dates: start: 20210721, end: 20210723
  42. ROCUMERON [Concomitant]
     Dosage: 5 MILLILITER, QD
     Route: 042
     Dates: start: 20210709, end: 20210709
  43. PETHIDIN HCL [Concomitant]
     Dosage: 25 MILLIGRAM
     Route: 042
     Dates: start: 20210709, end: 20210709
  44. FURTMAN [Concomitant]
     Dosage: 2 MILLILITER
     Route: 042
     Dates: start: 20210713, end: 20210714
  45. LIDOCAINE HYDROCHLORIDE. [Concomitant]
     Active Substance: LIDOCAINE HYDROCHLORIDE
     Dosage: 5 MILLILITER
     Route: 042
     Dates: start: 20210709, end: 20210709

REACTIONS (2)
  - Rectal adenoma [Recovered/Resolved]
  - Rectal dysplasia [Recovered/Resolved]

NARRATIVE: CASE EVENT DATE: 20210607
